FAERS Safety Report 9684108 (Version 1)
Quarter: 2013Q4

REPORT INFORMATION
  Report Type: Spontaneous
  Country: US (occurrence: US)
  Receive Date: 20131112
  Receipt Date: 20131112
  Transmission Date: 20140711
  Serious: Yes (Other)
  Sender: FDA-Public Use
  Company Number: PHHY2013US125704

PATIENT
  Age: 75 Year
  Sex: Male

DRUGS (7)
  1. GEMCITABINE [Suspect]
     Indication: MYCOSIS FUNGOIDES STAGE II
     Dosage: 1000 MG/M2, ON DAYS 1, 8, AND 15 OF A 28-DAY CYCLE
  2. DOXORUBICIN [Suspect]
     Indication: MYCOSIS FUNGOIDES STAGE II
  3. VINCRISTINE [Suspect]
     Indication: MYCOSIS FUNGOIDES STAGE II
  4. PREDNISONE [Suspect]
     Indication: MYCOSIS FUNGOIDES STAGE II
  5. CYCLOPHOSPHAMIDE [Suspect]
     Indication: MYCOSIS FUNGOIDES STAGE II
  6. BRENTUXIMAB [Concomitant]
     Dosage: 1.8 MG/KG, EVERY 3 WEEKS
  7. BRENTUXIMAB [Concomitant]
     Dosage: 1.2 MG/KG, UNK

REACTIONS (3)
  - Neuropathy peripheral [Unknown]
  - Mycosis fungoides stage II [Recovered/Resolved]
  - Malignant neoplasm progression [Unknown]
